FAERS Safety Report 10230889 (Version 1)
Quarter: 2014Q2

REPORT INFORMATION
  Report Type: Spontaneous
  Country: US (occurrence: None)
  Receive Date: 20140610
  Receipt Date: 20140610
  Transmission Date: 20141212
  Serious: Yes (Hospitalization)
  Sender: FDA-Public Use
  Company Number: None

PATIENT
  Age: 6 Year
  Sex: Male
  Weight: 20.6 kg

DRUGS (5)
  1. DEXAMETHASONE [Suspect]
  2. CYTARABINE [Suspect]
  3. METHOTREXATE [Suspect]
  4. PEG-L-ASPARAGINASE (PEGASPARGASE, ONCOSPAR) [Suspect]
  5. VINCRISTINE SULFATE [Suspect]

REACTIONS (7)
  - Hyperglycaemia [None]
  - Pollakiuria [None]
  - Hunger [None]
  - Lethargy [None]
  - Hallucination [None]
  - Nausea [None]
  - Diplopia [None]
